FAERS Safety Report 20177469 (Version 1)
Quarter: 2021Q4

REPORT INFORMATION
  Report Type: Spontaneous
  Country: US (occurrence: None)
  Receive Date: 20211212
  Receipt Date: 20211212
  Transmission Date: 20220303
  Serious: Yes (Life-Threatening, Other)
  Sender: FDA-Public Use
  Company Number: None

PATIENT
  Age: 60 Year
  Sex: Male
  Weight: 63.5 kg

DRUGS (1)
  1. PROAIR HFA [Suspect]
     Active Substance: ALBUTEROL SULFATE
     Indication: Asthma

REACTIONS (8)
  - Accidental overdose [None]
  - Product substitution issue [None]
  - Dyspnoea [None]
  - Swollen tongue [None]
  - Palpitations [None]
  - Device occlusion [None]
  - Gingival discomfort [None]
  - Device malfunction [None]

NARRATIVE: CASE EVENT DATE: 20211212
